FAERS Safety Report 12278642 (Version 2)
Quarter: 2016Q2

REPORT INFORMATION
  Report Type: Spontaneous
  Country: US (occurrence: US)
  Receive Date: 20160418
  Receipt Date: 20160421
  Transmission Date: 20160815
  Serious: No
  Sender: FDA-Public Use
  Company Number: US-PFIZER INC-2016200066

PATIENT
  Age: 70 Year
  Sex: Female

DRUGS (1)
  1. IBRANCE [Suspect]
     Active Substance: PALBOCICLIB
     Dosage: 125MG, ONCE DAILY, 3 WEEKS ON AND 1 WEEK OFF
     Route: 048
     Dates: start: 20160324

REACTIONS (3)
  - Anxiety [Unknown]
  - Fatigue [Unknown]
  - Decreased appetite [Unknown]
